FAERS Safety Report 5719843-7 (Version None)
Quarter: 2008Q2

REPORT INFORMATION
  Report Type: 
  Country: None (occurrence: None)
  Receive Date: 20080428
  Receipt Date: 20080416
  Transmission Date: 20081010
  Serious: Yes (Hospitalization)
  Sender: FDA-Public Use
  Company Number: US-MERCK-0706USA00968

PATIENT
  Age: 65 Year
  Sex: Female

DRUGS (6)
  1. FOSAMAX [Suspect]
     Indication: OSTEOPOROSIS
     Route: 048
     Dates: start: 20050718, end: 20060101
  2. EFFEXOR [Concomitant]
     Indication: ANXIETY
     Route: 065
     Dates: start: 20040101, end: 20070101
  3. EFFEXOR [Concomitant]
     Indication: DEPRESSION
     Route: 065
     Dates: start: 20040101, end: 20070101
  4. PRAVACHOL [Concomitant]
     Indication: BLOOD CHOLESTEROL INCREASED
     Route: 065
     Dates: start: 20030623, end: 20070101
  5. ATIVAN [Concomitant]
     Route: 065
  6. ELAVIL [Concomitant]
     Indication: FIBROMYALGIA
     Route: 048

REACTIONS (10)
  - ANXIETY [None]
  - CHEST PAIN [None]
  - DEPRESSION [None]
  - HYPOAESTHESIA [None]
  - LARYNGITIS [None]
  - MAJOR DEPRESSION [None]
  - PAIN IN JAW [None]
  - POST-TRAUMATIC STRESS DISORDER [None]
  - TOOTH DISORDER [None]
  - TOOTH LOSS [None]
